FAERS Safety Report 12459495 (Version 2)
Quarter: 2016Q2

REPORT INFORMATION
  Report Type: Spontaneous
  Country: US (occurrence: US)
  Receive Date: 20160613
  Receipt Date: 20160621
  Transmission Date: 20160815
  Serious: Yes (Life-Threatening, Other)
  Sender: FDA-Public Use
  Company Number: US-GLAXOSMITHKLINE-US2016GSK083530

PATIENT
  Sex: Female

DRUGS (1)
  1. OMEGA-3-ACID ETHYL ESTERS. [Suspect]
     Active Substance: OMEGA-3-ACID ETHYL ESTERS
     Indication: BLOOD TRIGLYCERIDES ABNORMAL
     Dosage: 1000 MG, UNK
     Dates: start: 201604

REACTIONS (9)
  - Cholecystectomy [Unknown]
  - Surgery [Unknown]
  - Blood pressure abnormal [Unknown]
  - Fatigue [Unknown]
  - Perforation bile duct [Unknown]
  - Malaise [Unknown]
  - Stress [Unknown]
  - Peritonitis [Unknown]
  - Pain [Unknown]
